FAERS Safety Report 7535075 (Version 7)
Quarter: 2024Q1

REPORT INFORMATION
  Report Type: Other
  Country: DE (occurrence: DE)
  Receive Date: 20100810
  Receipt Date: 20240304
  Transmission Date: 20240410
  Serious: Yes (Hospitalization)
  Sender: FDA-Public Use
  Company Number: DE-ROCHE-718882

PATIENT
  Age: 39 Year
  Sex: Female
  Weight: 63 kg

DRUGS (13)
  1. AVASTIN [Suspect]
     Active Substance: BEVACIZUMAB
     Indication: Breast cancer metastatic
     Dosage: CYCLES 1 AND 2
     Route: 042
     Dates: start: 20100505
  2. AVASTIN [Suspect]
     Active Substance: BEVACIZUMAB
     Indication: Breast cancer
     Dosage: THIRD CYCLE
     Route: 042
     Dates: start: 20100616
  3. AVASTIN [Suspect]
     Active Substance: BEVACIZUMAB
     Route: 042
     Dates: start: 20100505, end: 20100616
  4. AVASTIN [Suspect]
     Active Substance: BEVACIZUMAB
     Dosage: THIRD CYCLE
     Route: 042
  5. DOCETAXEL [Suspect]
     Active Substance: DOCETAXEL\DOCETAXEL ANHYDROUS
     Indication: Breast cancer metastatic
     Dosage: CYCLES 1 AND 2
     Route: 042
     Dates: start: 20100505
  6. DOCETAXEL [Suspect]
     Active Substance: DOCETAXEL\DOCETAXEL ANHYDROUS
     Indication: Breast cancer
     Dosage: CYCLE 3
     Route: 042
  7. DOCETAXEL [Suspect]
     Active Substance: DOCETAXEL\DOCETAXEL ANHYDROUS
     Dosage: FURTHER DOSE TAKEN ON DATES 26/MAY/2010, 16/JUN/2010, 07/JUL/2010, 28/JUL/2010, 18/AUG/2010
     Route: 042
  8. IBANDRONIC ACID [Suspect]
     Active Substance: IBANDRONIC ACID
     Indication: Metastases to bone
     Dosage: CYCLES 1 AND 2
     Route: 042
     Dates: end: 201006
  9. IBANDRONIC ACID [Suspect]
     Active Substance: IBANDRONIC ACID
     Dosage: THIRD CYCLE
     Route: 042
     Dates: start: 20100616
  10. CIPROFLOXACIN [Concomitant]
     Active Substance: CIPROFLOXACIN
     Indication: Infection
     Dates: start: 20100514, end: 20100524
  11. CIPROFLOXACIN [Concomitant]
     Active Substance: CIPROFLOXACIN
     Indication: Ear pain
     Dates: start: 20100601, end: 20100611
  12. BISOPROLOL [Concomitant]
     Active Substance: BISOPROLOL\BISOPROLOL FUMARATE
     Indication: Tachycardia
     Route: 048
     Dates: start: 20101222
  13. IBUPROFEN [Concomitant]
     Active Substance: IBUPROFEN
     Indication: Bone pain
     Route: 048
     Dates: start: 20101106

REACTIONS (2)
  - Anaemia [Recovered/Resolved]
  - Epistaxis [Recovered/Resolved]

NARRATIVE: CASE EVENT DATE: 20100629
